FAERS Safety Report 5312232-9 (Version None)
Quarter: 2007Q2

REPORT INFORMATION
  Report Type: 
  Country: None (occurrence: None)
  Receive Date: 20070430
  Receipt Date: 20060922
  Transmission Date: 20071010
  Serious: No
  Sender: FDA-Public Use
  Company Number: 2006UW18559

PATIENT
  Age: 53 Year
  Sex: Female
  Weight: 63.5 kg

DRUGS (6)
  1. NEXIUM [Suspect]
     Indication: REFLUX GASTRITIS
     Route: 048
     Dates: start: 20060501
  2. NEXIUM [Suspect]
     Route: 048
     Dates: start: 20060815
  3. SINGULAIR [Concomitant]
  4. CLARINEX [Concomitant]
  5. RHINOCORT [Concomitant]
  6. WELLBUTRIN [Concomitant]

REACTIONS (3)
  - ANOREXIA [None]
  - IMPAIRED WORK ABILITY [None]
  - NAUSEA [None]
